FAERS Safety Report 7786559-5 (Version None)
Quarter: 2011Q3

REPORT INFORMATION
  Report Type: 
  Country: None (occurrence: None)
  Receive Date: 20110929
  Receipt Date: 20110927
  Transmission Date: 20111222
  Serious: Yes (Hospitalization, Other)
  Sender: FDA-Public Use
  Company Number: FR-GLAXOSMITHKLINE-B0750671A

PATIENT
  Sex: Male

DRUGS (7)
  1. PAROXETINE HCL [Suspect]
     Indication: PRODUCT USED FOR UNKNOWN INDICATION
     Dosage: 20MG TWICE PER DAY
     Route: 048
     Dates: start: 19950101, end: 20110731
  2. ASPIRIN [Concomitant]
     Dosage: 75MG PER DAY
     Route: 065
  3. MIANSERINE [Concomitant]
     Dosage: 30MG PER DAY
     Route: 065
  4. ATORVASTATIN CALCIUM [Concomitant]
     Dosage: 10MG PER DAY
     Route: 065
  5. ALPRAZOLAM [Concomitant]
     Dosage: .5MG THREE TIMES PER DAY
     Route: 065
  6. LANSOPRAZOLE [Concomitant]
     Dosage: 30MG PER DAY
     Route: 065
  7. OMACOR [Concomitant]
     Route: 065

REACTIONS (3)
  - THROMBOCYTOPENIA [None]
  - GAMMA-GLUTAMYLTRANSFERASE INCREASED [None]
  - PROTHROMBIN LEVEL DECREASED [None]
